FAERS Safety Report 6863322-0 (Version None)
Quarter: 2010Q3

REPORT INFORMATION
  Report Type: 
  Country: None (occurrence: None)
  Receive Date: 20100721
  Receipt Date: 20100712
  Transmission Date: 20110219
  Serious: Yes (Hospitalization)
  Sender: FDA-Public Use
  Company Number: DK-JNJFOC-20100509116

PATIENT
  Sex: Female
  Weight: 60 kg

DRUGS (5)
  1. TOPIRAMATE [Suspect]
     Indication: BIPOLAR DISORDER
     Route: 048
  2. TOPIRAMATE [Suspect]
     Route: 048
  3. TOPIRAMATE [Suspect]
     Route: 048
  4. TOPIRAMATE [Suspect]
     Route: 048
  5. TOPIRAMATE [Suspect]
     Dosage: 400 AND 600 MG/24 HOURS
     Route: 048

REACTIONS (8)
  - AMNESIA [None]
  - BIPOLAR DISORDER [None]
  - CONFUSIONAL STATE [None]
  - CONVULSION [None]
  - OVERDOSE [None]
  - PSYCHOTIC DISORDER [None]
  - SPEECH DISORDER [None]
  - TREATMENT NONCOMPLIANCE [None]
